FAERS Safety Report 18775712 (Version 1)
Quarter: 2021Q1

REPORT INFORMATION
  Report Type: Spontaneous
  Country: US (occurrence: US)
  Receive Date: 20210122
  Receipt Date: 20210122
  Transmission Date: 20210419
  Serious: Yes (Hospitalization)
  Sender: FDA-Public Use
  Company Number: US-MYLANLABS-2021M1003948

PATIENT
  Age: 10 Year
  Sex: Male

DRUGS (5)
  1. PHENYTOIN. [Concomitant]
     Active Substance: PHENYTOIN
     Indication: STATUS EPILEPTICUS
     Dosage: 8 MILLIGRAM/KILOGRAM, QD ALONG WITH LEVETIRACETAM
     Route: 065
  2. PHENYTOIN. [Concomitant]
     Active Substance: PHENYTOIN
     Dosage: 9 MILLIGRAM/KILOGRAM, QD PHENYTOIN 150 MG TWICE DAILY (9 MG/KG/D) WHEN LEVETIRACETAM WAS STOPPED
     Route: 065
  3. LEVETIRACETAM. [Suspect]
     Active Substance: LEVETIRACETAM
     Dosage: 60 MG/KG, QD LEVETIRACETAM 1000 MG BID 60 MG/KG/D, SINCE HIGHER DOSES DID NOT HELP CONTROL SEIZURE.
     Route: 065
  4. VALPROIC ACID. [Concomitant]
     Active Substance: VALPROIC ACID
     Indication: STATUS EPILEPTICUS
     Dosage: VALPROIC ACID LOADING DOSE
     Route: 065
  5. LEVETIRACETAM. [Suspect]
     Active Substance: LEVETIRACETAM
     Indication: STATUS EPILEPTICUS
     Dosage: 100 MILLIGRAM/KILOGRAM, QD
     Route: 065

REACTIONS (1)
  - Drug ineffective [Unknown]
